FAERS Safety Report 17693904 (Version 1)
Quarter: 2020Q2

REPORT INFORMATION
  Report Type: Spontaneous
  Country: CN (occurrence: CN)
  Receive Date: 20200422
  Receipt Date: 20200422
  Transmission Date: 20200714
  Serious: Yes (Other)
  Sender: FDA-Public Use
  Company Number: CN-PFIZER INC-2020156901

PATIENT
  Age: 16 Year
  Sex: Female
  Weight: 45 kg

DRUGS (2)
  1. HAN ZHU TING [Concomitant]
     Indication: ABORTION INDUCED
     Dosage: 25 MG, 2X/DAY
     Route: 048
     Dates: start: 20200408, end: 20200410
  2. MISOPROSTOL. [Suspect]
     Active Substance: MISOPROSTOL
     Indication: ABORTION INDUCED
     Dosage: 0.6 MG, 1X/DAY
     Route: 048
     Dates: start: 20200411, end: 20200411

REACTIONS (3)
  - Seizure [Recovering/Resolving]
  - Musculoskeletal stiffness [Recovering/Resolving]
  - Feeling cold [Recovering/Resolving]

NARRATIVE: CASE EVENT DATE: 20200411
